FAERS Safety Report 9377236 (Version 1)
Quarter: 2013Q3

REPORT INFORMATION
  Report Type: Spontaneous
  Country: US (occurrence: US)
  Receive Date: 20130701
  Receipt Date: 20130701
  Transmission Date: 20140515
  Serious: No
  Sender: FDA-Public Use
  Company Number: US-PFIZER INC-2013190780

PATIENT
  Age: 61 Year
  Sex: Female
  Weight: 81.63 kg

DRUGS (4)
  1. LEVOXYL [Suspect]
     Indication: HYPOTHYROIDISM
     Dosage: 25 UG, 1X/DAY
     Route: 048
  2. LEVOXYL [Suspect]
     Dosage: 125 UG, 1X/DAY
     Route: 048
  3. LEVOXYL [Suspect]
     Dosage: 75 UG, 1X/DAY
     Route: 048
  4. OMEPRAZOLE [Concomitant]
     Indication: GASTROOESOPHAGEAL REFLUX DISEASE
     Dosage: UNK
     Dates: start: 2000

REACTIONS (3)
  - Drug dispensing error [Unknown]
  - Accidental overdose [Unknown]
  - Blood thyroid stimulating hormone increased [Recovered/Resolved]
